FAERS Safety Report 24409190 (Version 1)
Quarter: 2024Q4

REPORT INFORMATION
  Report Type: Spontaneous
  Country: CO (occurrence: CO)
  Receive Date: 20241008
  Receipt Date: 20241008
  Transmission Date: 20250115
  Serious: Yes (Other)
  Sender: NOVO NORDISK
  Company Number: CO-NOVOPROD-1292286

PATIENT
  Sex: Female
  Weight: 38 kg

DRUGS (1)
  1. SAXENDA [Suspect]
     Active Substance: LIRAGLUTIDE
     Indication: Overweight
     Dosage: 0.6 MG, QD
     Route: 058

REACTIONS (7)
  - Tinnitus [Recovered/Resolved]
  - Presyncope [Recovered/Resolved]
  - Blood pressure fluctuation [Recovered/Resolved]
  - Blood glucose decreased [Recovered/Resolved]
  - Tachycardia [Recovered/Resolved]
  - Eructation [Recovered/Resolved]
  - Abdominal pain upper [Recovered/Resolved]
